FAERS Safety Report 4335292-0 (Version None)
Quarter: 2004Q2

REPORT INFORMATION
  Report Type: 
  Country: None (occurrence: None)
  Receive Date: 20040408
  Receipt Date: 20040408
  Transmission Date: 20050107
  Serious: Yes (Other)
  Sender: FDA-Public Use
  Company Number: None

PATIENT
  Age: 67 Year
  Sex: Male
  Weight: 65.3 kg

DRUGS (2)
  1. LAMIVUDINE/ZIDOVUDINE [Suspect]
     Indication: HIV INFECTION
     Dosage: Q12H, Q12H, ORAL
     Route: 048
     Dates: start: 20040129, end: 20040212
  2. DIDANOSINE [Concomitant]

REACTIONS (1)
  - BLOOD LACTIC ACID INCREASED [None]
